FAERS Safety Report 9445410 (Version 2)
Quarter: 2013Q3

REPORT INFORMATION
  Report Type: Spontaneous
  Country: US (occurrence: US)
  Receive Date: 20130807
  Receipt Date: 20130809
  Transmission Date: 20140515
  Serious: No
  Sender: FDA-Public Use
  Company Number: US-PFIZER INC-2013225499

PATIENT
  Age: 38 Year
  Sex: Male
  Weight: 87 kg

DRUGS (3)
  1. CHANTIX [Suspect]
     Indication: SMOKING CESSATION THERAPY
     Dosage: 0.5 MG, 1X/DAY
     Route: 048
     Dates: start: 20130728, end: 201307
  2. CHANTIX [Suspect]
     Dosage: 0.5 MG, 2X/DAY
     Route: 048
     Dates: start: 201307, end: 20130801
  3. LOTREL [Concomitant]
     Indication: HYPERTENSION
     Dosage: [AMLODIPINE 10MG]/[BENAZEPRIL HYDROCHLORIDE 20 MG], UNK

REACTIONS (10)
  - Depression [Recovered/Resolved]
  - Paranoia [Recovering/Resolving]
  - Crying [Recovering/Resolving]
  - Nervousness [Recovering/Resolving]
  - Feeling abnormal [Recovering/Resolving]
  - Abnormal dreams [Recovering/Resolving]
  - Fatigue [Recovering/Resolving]
  - Sluggishness [Recovering/Resolving]
  - Mood swings [Recovered/Resolved]
  - Thinking abnormal [Recovered/Resolved]
